FAERS Safety Report 4955387-8 (Version None)
Quarter: 2006Q1

REPORT INFORMATION
  Report Type: 
  Country: None (occurrence: None)
  Receive Date: 20060322
  Receipt Date: 20060310
  Transmission Date: 20060701
  Serious: Yes (Hospitalization)
  Sender: FDA-Public Use
  Company Number: 2006PV010021

PATIENT
  Age: 68 Year
  Sex: Female
  Weight: 85.2762 kg

DRUGS (11)
  1. BYETTA [Suspect]
     Indication: DIABETES MELLITUS NON-INSULIN-DEPENDENT
     Dosage: 5 MCG;SC
     Route: 058
     Dates: start: 20050101
  2. METFORMIN [Concomitant]
  3. HYDROCHLOROTHIAZIDE [Concomitant]
  4. ATENOLOL [Concomitant]
  5. NEXIUM [Concomitant]
  6. LISINOPRIL [Concomitant]
  7. LEXAPRO [Concomitant]
  8. NEURONTIN [Concomitant]
  9. XANAX [Concomitant]
  10. PILOCARPINE [Concomitant]
  11. OTC MELATONIN [Concomitant]

REACTIONS (12)
  - ARRHYTHMIA [None]
  - CONFUSIONAL STATE [None]
  - DECREASED APPETITE [None]
  - DEHYDRATION [None]
  - DRUG DOSE OMISSION [None]
  - HYPERSENSITIVITY [None]
  - NON-CARDIAC CHEST PAIN [None]
  - POOR QUALITY DRUG ADMINISTERED [None]
  - PRURITUS [None]
  - PULMONARY HYPERTENSION [None]
  - URTICARIA [None]
  - WEIGHT DECREASED [None]
